FAERS Safety Report 4343962-3 (Version None)
Quarter: 2004Q2

REPORT INFORMATION
  Report Type: 
  Country: None (occurrence: None)
  Receive Date: 20040419
  Receipt Date: 20040401
  Transmission Date: 20050107
  Serious: Yes (Death)
  Sender: FDA-Public Use
  Company Number: A02200400405

PATIENT
  Age: 78 Year
  Sex: Female

DRUGS (5)
  1. PLAVIX [Suspect]
     Indication: CORONARY ANGIOPLASTY
     Dosage: 375 MG LOADING DOSE THEN 150 MG DAILY  ORAL
     Route: 048
     Dates: start: 20040128, end: 20040130
  2. PLAVIX [Suspect]
     Indication: CORONARY ARTERIAL STENT INSERTION
     Dosage: 375 MG LOADING DOSE THEN 150 MG DAILY  ORAL
     Route: 048
     Dates: start: 20040128, end: 20040130
  3. ASPIRIN [Concomitant]
  4. AGRASTAT (TIROFIBAN HYDROCHLORIDE) [Concomitant]
  5. LOVENOX [Concomitant]

REACTIONS (6)
  - ACUTE MYOCARDIAL INFARCTION [None]
  - CARDIAC ARREST [None]
  - DRUG INEFFECTIVE [None]
  - ISCHAEMIA [None]
  - PRESCRIBED OVERDOSE [None]
  - STENT OCCLUSION [None]
